FAERS Safety Report 11425380 (Version 2)
Quarter: 2015Q3

REPORT INFORMATION
  Report Type: Spontaneous
  Country: US (occurrence: US)
  Receive Date: 20150821
  Receipt Date: 20150903
  Transmission Date: 20151125
  Serious: No
  Sender: FDA-Public Use
  Company Number: US-ELI_LILLY_AND_COMPANY-US201103001329

PATIENT
  Sex: Male

DRUGS (3)
  1. HUMULIN N [Suspect]
     Active Substance: INSULIN HUMAN
     Indication: DIABETES MELLITUS
     Dosage: UNK, AS NEEDED
     Dates: start: 1997
  2. PROCRIT [Concomitant]
     Active Substance: ERYTHROPOIETIN
     Indication: RENAL DISORDER
     Dosage: UNK, WEEKLY (1/W)
  3. HUMALOG [Suspect]
     Active Substance: INSULIN LISPRO
     Indication: DIABETES MELLITUS
     Dosage: UNK, AS NEEDED
     Dates: start: 1997

REACTIONS (3)
  - Renal disorder [Unknown]
  - Glycosylated haemoglobin increased [Unknown]
  - Anaemia [Unknown]
